FAERS Safety Report 15419560 (Version 1)
Quarter: 2018Q3

REPORT INFORMATION
  Report Type: Spontaneous
  Country: FI (occurrence: FI)
  Receive Date: 20180924
  Receipt Date: 20180924
  Transmission Date: 20181010
  Serious: Yes (Hospitalization, Other)
  Sender: FDA-Public Use
  Company Number: FI-MYLANLABS-2018M1069230

PATIENT
  Age: 68 Year
  Sex: Male

DRUGS (20)
  1. RISPERIDONE. [Suspect]
     Active Substance: RISPERIDONE
     Dosage: 8 MG, QD (4 MG, BID (1+0+3 MG)
     Route: 065
     Dates: start: 20180114
  2. ATIVAN [Suspect]
     Active Substance: LORAZEPAM
     Indication: PRODUCT USED FOR UNKNOWN INDICATION
     Dosage: 4 MG, UNK
     Route: 065
  3. ZYPREXA [Suspect]
     Active Substance: OLANZAPINE
     Indication: PRODUCT USED FOR UNKNOWN INDICATION
     Dosage: 15 MG, UNK
     Route: 065
  4. OLANZAPINE. [Suspect]
     Active Substance: OLANZAPINE
     Dosage: 7.5 MG, UNK
     Route: 065
  5. RISPERIDONE. [Suspect]
     Active Substance: RISPERIDONE
     Dosage: 1 MG, QD (IN THE EVENINGS)
     Route: 065
     Dates: start: 20171231
  6. ATIVAN [Suspect]
     Active Substance: LORAZEPAM
     Dosage: 6 MG, QD (2 MG, TID (0,5+0,5+1))
     Route: 065
     Dates: start: 20180104
  7. RISPERIDONE. [Suspect]
     Active Substance: RISPERIDONE
     Dosage: 2 MG, UNK
     Route: 065
  8. RISPERIDONE. [Suspect]
     Active Substance: RISPERIDONE
     Dosage: 3 MG, QD
     Route: 065
     Dates: start: 20180115
  9. DIAPAM                             /00017001/ [Suspect]
     Active Substance: DIAZEPAM
     Dosage: 15 MG, QD
     Route: 065
  10. OLANZAPINE. [Suspect]
     Active Substance: OLANZAPINE
     Dosage: 6 MG, QD (2 MG, TID)
     Route: 065
     Dates: start: 20180201
  11. RISPERIDONE. [Suspect]
     Active Substance: RISPERIDONE
     Dosage: 1 MG, QD
     Route: 065
     Dates: start: 20180127, end: 20180129
  12. SERENASE                           /00027401/ [Suspect]
     Active Substance: HALOPERIDOL
     Indication: PRODUCT USED FOR UNKNOWN INDICATION
     Dosage: 5 MG, UNK
     Route: 065
  13. OLANZAPINE. [Suspect]
     Active Substance: OLANZAPINE
     Indication: HALLUCINATION, VISUAL
     Dosage: 10 MG, QD
     Route: 065
     Dates: start: 20180124
  14. SERENASE                           /00027401/ [Suspect]
     Active Substance: HALOPERIDOL
     Dosage: UNK (2 X SERENASE 2,5 MG)
     Route: 065
  15. OLANZAPINE. [Suspect]
     Active Substance: OLANZAPINE
     Dosage: UNK
     Route: 065
  16. RISPERIDONE. [Suspect]
     Active Substance: RISPERIDONE
     Indication: HALLUCINATION, VISUAL
     Dosage: 6 MG, QD (3 MG, BID (1+0+2 MG)
     Route: 065
     Dates: start: 20180107
  17. RISPERIDONE. [Suspect]
     Active Substance: RISPERIDONE
     Dosage: 2 MG, QD (2 MG, QD (0+0+2)
     Route: 065
     Dates: start: 20180124
  18. ATIVAN [Suspect]
     Active Substance: LORAZEPAM
     Dosage: 9 MG, QD (3 MG, TID)
     Route: 065
     Dates: start: 20180107
  19. ATIVAN [Suspect]
     Active Substance: LORAZEPAM
     Dosage: 2 MG, UNK (RESTLESS, DELUSIONAL)
     Route: 065
  20. DIAPAM                             /00017001/ [Suspect]
     Active Substance: DIAZEPAM
     Indication: PRODUCT USED FOR UNKNOWN INDICATION
     Dosage: 30 MG, QD (10 MG, TID)
     Route: 065

REACTIONS (5)
  - Hallucination [Recovering/Resolving]
  - Vascular dementia [Recovering/Resolving]
  - Balance disorder [Recovering/Resolving]
  - Parkinson^s disease [Recovering/Resolving]
  - Dementia with Lewy bodies [Recovering/Resolving]
